FAERS Safety Report 14268630 (Version 3)
Quarter: 2018Q1

REPORT INFORMATION
  Report Type: Report from Study
  Country: CA (occurrence: CA)
  Receive Date: 20171211
  Receipt Date: 20180129
  Transmission Date: 20180508
  Serious: Yes (Other)
  Sender: FDA-Public Use
  Company Number: CA-JNJFOC-20171209236

PATIENT
  Age: 34 Year
  Sex: Female

DRUGS (1)
  1. SIMPONI [Suspect]
     Active Substance: GOLIMUMAB
     Indication: RHEUMATOID ARTHRITIS
     Dosage: STRENGTH = 50 MG??3 WEEKS
     Route: 058
     Dates: start: 20170411

REACTIONS (5)
  - Pneumonia [Unknown]
  - Off label use [Unknown]
  - Product use issue [Unknown]
  - Kidney infection [Unknown]
  - Ear infection [Unknown]

NARRATIVE: CASE EVENT DATE: 20170411
